FAERS Safety Report 5954013-9 (Version None)
Quarter: 2008Q4

REPORT INFORMATION
  Report Type: 
  Country: None (occurrence: None)
  Receive Date: 20081114
  Receipt Date: 20081105
  Transmission Date: 20090506
  Serious: Yes (Hospitalization)
  Sender: FDA-Public Use
  Company Number: FR-PFIZER INC-2008094304

PATIENT
  Age: 73 Year
  Sex: Male

DRUGS (10)
  1. ZOXAN LP [Suspect]
     Route: 048
  2. SPIRIVA [Suspect]
  3. IBUPROFEN TABLETS [Suspect]
     Dates: end: 20080701
  4. PLAVIX [Suspect]
     Dosage: TEXT:75 MG
     Route: 048
     Dates: start: 20080101
  5. LANSOPRAZOLE [Suspect]
     Dosage: TEXT:1 DF
     Route: 048
  6. ASPIRIN/PRAVASTATINE [Suspect]
     Dosage: TEXT:1 DF
     Route: 048
  7. GLICLAZIDE [Suspect]
     Route: 048
  8. DIOSMIN [Suspect]
     Route: 048
  9. TANAKAN [Suspect]
     Route: 048
  10. TADALAFIL [Suspect]
     Route: 048

REACTIONS (1)
  - PULMONARY FIBROSIS [None]
